FAERS Safety Report 9146523 (Version 1)
Quarter: 2013Q1

REPORT INFORMATION
  Report Type: Spontaneous
  Country: US (occurrence: US)
  Receive Date: 20130307
  Receipt Date: 20130307
  Transmission Date: 20140127
  Serious: No
  Sender: FDA-Public Use
  Company Number: US-GLAXOSMITHKLINE-A0992595A

PATIENT
  Age: 54 Year
  Sex: Male

DRUGS (10)
  1. REQUIP [Suspect]
     Indication: RESTLESS LEGS SYNDROME
     Dosage: 1.5MG PER DAY
     Route: 048
  2. ADDERALL [Concomitant]
  3. AMBIEN [Concomitant]
  4. ZOCOR [Concomitant]
  5. CYMBALTA [Concomitant]
  6. LISINOPRIL [Concomitant]
  7. PLAQUENIL [Concomitant]
  8. LEXAPRO [Concomitant]
  9. ANTARA [Concomitant]
  10. ASPIRIN LOW DOSE [Concomitant]

REACTIONS (1)
  - Gastrointestinal disorder [Unknown]
